FAERS Safety Report 9535594 (Version 1)
Quarter: 2013Q3

REPORT INFORMATION
  Report Type: Spontaneous
  Country: US (occurrence: US)
  Receive Date: 20130919
  Receipt Date: 20130919
  Transmission Date: 20140515
  Serious: Yes (Other)
  Sender: FDA-Public Use
  Company Number: US-JNJFOC-20130905775

PATIENT
  Sex: Female

DRUGS (1)
  1. BENADRYL ALLERGY DYE-FREE [Suspect]
     Indication: SLEEP DISORDER THERAPY
     Dosage: 100 OR 150MG, 6 EVERY NIGHT
     Route: 048
     Dates: start: 201307, end: 20130905

REACTIONS (7)
  - Pharyngeal oedema [Not Recovered/Not Resolved]
  - Swelling face [Not Recovered/Not Resolved]
  - Snoring [Not Recovered/Not Resolved]
  - Weight increased [Not Recovered/Not Resolved]
  - Inappropriate schedule of drug administration [Unknown]
  - Drug prescribing error [Unknown]
  - Product packaging issue [Unknown]
